FAERS Safety Report 10031717 (Version 1)
Quarter: 2014Q1

REPORT INFORMATION
  Report Type: Spontaneous
  Country: US (occurrence: US)
  Receive Date: 20140324
  Receipt Date: 20140324
  Transmission Date: 20141002
  Serious: No
  Sender: FDA-Public Use
  Company Number: US-009507513-1401USA003490

PATIENT
  Sex: Male

DRUGS (1)
  1. MIRALAX [Suspect]
     Indication: PRODUCT USED FOR UNKNOWN INDICATION
     Dosage: 34 G, QD
     Route: 048
     Dates: start: 201312

REACTIONS (3)
  - Chromaturia [Not Recovered/Not Resolved]
  - Overdose [Unknown]
  - Incorrect drug administration duration [Unknown]
